FAERS Safety Report 5724841-3 (Version None)
Quarter: 2008Q2

REPORT INFORMATION
  Report Type: 
  Country: None (occurrence: None)
  Receive Date: 20080430
  Receipt Date: 20080430
  Transmission Date: 20081010
  Serious: Yes (Hospitalization)
  Sender: FDA-Public Use
  Company Number: None

PATIENT
  Age: 59 Year
  Sex: Male

DRUGS (2)
  1. AMIFOSTINE [Suspect]
     Dosage: 50 MG EVERY DAY IV
     Route: 042
     Dates: start: 20080125, end: 20080313
  2. CETUXIMAB [Suspect]
     Dosage: 730 MG ONCE IV
     Route: 042
     Dates: start: 20080118, end: 20080313

REACTIONS (3)
  - FEEDING DISORDER [None]
  - HAEMATEMESIS [None]
  - NAUSEA [None]
